FAERS Safety Report 7951914-7 (Version None)
Quarter: 2011Q4

REPORT INFORMATION
  Report Type: 
  Country: None (occurrence: None)
  Receive Date: 20111201
  Receipt Date: 20111122
  Transmission Date: 20120403
  Serious: No
  Sender: FDA-Public Use
  Company Number: US-B.I. PHARMACEUTICALS,INC./RIDGEFIELD-2011-BP-26751BP

PATIENT
  Sex: Female

DRUGS (5)
  1. LISINOPRIL [Concomitant]
     Indication: HYPERTENSION
     Route: 048
  2. PROPASENONE [Concomitant]
     Indication: ATRIAL FIBRILLATION
     Route: 048
  3. OSCAL [Concomitant]
     Indication: SUPPLEMENTATION THERAPY
     Route: 048
  4. PRADAXA [Suspect]
     Indication: ATRIAL FIBRILLATION
     Dosage: 300 MG
     Route: 048
     Dates: start: 20101201
  5. MULTI-VITAMIN [Concomitant]
     Indication: VITAMIN SUPPLEMENTATION
     Route: 048

REACTIONS (6)
  - MUSCULOSKELETAL PAIN [None]
  - ARTHRALGIA [None]
  - NECK PAIN [None]
  - RESTLESSNESS [None]
  - HAEMATURIA [None]
  - PAIN IN EXTREMITY [None]
